FAERS Safety Report 5610575-2 (Version None)
Quarter: 2008Q1

REPORT INFORMATION
  Report Type: 
  Country: None (occurrence: None)
  Receive Date: 20080131
  Receipt Date: 20080131
  Transmission Date: 20080703
  Serious: Yes (Hospitalization, Other)
  Sender: FDA-Public Use
  Company Number: None

PATIENT
  Age: 43 Year
  Sex: Female
  Weight: 71.2147 kg

DRUGS (1)
  1. LEVAQUIN [Suspect]
     Indication: PNEUMONIA
     Dosage: 1 TABLET DAILY PO
     Route: 048
     Dates: start: 20080127, end: 20080127

REACTIONS (10)
  - ANXIETY [None]
  - ASTHENIA [None]
  - DRY MOUTH [None]
  - HEART RATE INCREASED [None]
  - IRRITABILITY [None]
  - MICTURITION DISORDER [None]
  - MUSCULOSKELETAL STIFFNESS [None]
  - PALPITATIONS [None]
  - PERIPHERAL COLDNESS [None]
  - THROMBOSIS [None]
